FAERS Safety Report 22149927 (Version 1)
Quarter: 2023Q1

REPORT INFORMATION
  Report Type: Spontaneous
  Country: None (occurrence: DE)
  Receive Date: 20230329
  Receipt Date: 20230329
  Transmission Date: 20230417
  Serious: Yes (Other)
  Sender: FDA-Public Use
  Company Number: DE-Diagnostic Green GmbH-2139648

PATIENT
  Age: 48 Year
  Sex: Male

DRUGS (1)
  1. INDOCYANINE GREEN [Suspect]
     Active Substance: INDOCYANINE GREEN
     Indication: Fluorescence angiogram
     Route: 040

REACTIONS (1)
  - Oxygen saturation decreased [Unknown]
